FAERS Safety Report 9111387 (Version 2)
Quarter: 2014Q1

REPORT INFORMATION
  Report Type: Spontaneous
  Country: US (occurrence: US)
  Receive Date: 20130219
  Receipt Date: 20140213
  Transmission Date: 20141002
  Serious: Yes (Other)
  Sender: FDA-Public Use
  Company Number: US-BRISTOL-MYERS SQUIBB COMPANY-16886608

PATIENT
  Age: 64 Year
  Sex: Female
  Weight: 69.84 kg

DRUGS (2)
  1. ORENCIA [Suspect]
     Indication: RHEUMATOID ARTHRITIS
     Dosage: LAST INF ON 17AUG12 ?06-MAR-2013?INTERUPTED AND RESTARTED IN 2012
     Route: 042
     Dates: start: 2011, end: 20130306
  2. SULFASALAZINE [Concomitant]
     Dosage: 1%

REACTIONS (7)
  - Invasive ductal breast carcinoma [Unknown]
  - Anaemia [Unknown]
  - Arthralgia [Recovered/Resolved]
  - Hyperhidrosis [Not Recovered/Not Resolved]
  - Back pain [Recovering/Resolving]
  - Nerve injury [Unknown]
  - Cough [Recovered/Resolved]
